FAERS Safety Report 4630195-6 (Version None)
Quarter: 2005Q2

REPORT INFORMATION
  Report Type: 
  Country: None (occurrence: None)
  Receive Date: 20050408
  Receipt Date: 20050329
  Transmission Date: 20051028
  Serious: Yes (Hospitalization, Other)
  Sender: FDA-Public Use
  Company Number: US-JNJFOC-20040400978

PATIENT
  Sex: Female
  Weight: 63.6 kg

DRUGS (29)
  1. REMICADE [Suspect]
     Route: 042
  2. REMICADE [Suspect]
     Route: 042
  3. REMICADE [Suspect]
     Route: 042
  4. REMICADE [Suspect]
     Route: 042
  5. REMICADE [Suspect]
     Route: 042
  6. REMICADE [Suspect]
     Indication: RHEUMATOID ARTHRITIS
     Route: 042
  7. ^MET^ [Concomitant]
  8. METHOTREXATE [Concomitant]
     Indication: RHEUMATOID ARTHRITIS
  9. FOLIC ACID [Concomitant]
  10. LEUCOVORIN CALCIUM [Concomitant]
  11. PROTONIX [Concomitant]
  12. SOMA [Concomitant]
  13. VICODIN [Concomitant]
  14. VICODIN [Concomitant]
  15. MS CONTIN [Concomitant]
  16. FLEXERIL [Concomitant]
  17. FISH OIL [Concomitant]
  18. VIOXX [Concomitant]
  19. CLOTRIMAZOLE [Concomitant]
  20. WELLBUTRIN [Concomitant]
  21. CLONAZEPAM [Concomitant]
  22. AMBIEN [Concomitant]
  23. COLACE [Concomitant]
  24. ELAVIL [Concomitant]
  25. TEGRETOL [Concomitant]
  26. TYLENOL (CAPLET) [Concomitant]
  27. TYLENOL (CAPLET) [Concomitant]
     Indication: PREMEDICATION
  28. ALLEGRA [Concomitant]
  29. ALLEGRA [Concomitant]
     Indication: PREMEDICATION

REACTIONS (6)
  - LIMB OPERATION [None]
  - NEUROPATHY [None]
  - PNEUMONIA [None]
  - PULMONARY MYCOSIS [None]
  - SHOULDER OPERATION [None]
  - THERAPEUTIC RESPONSE DECREASED [None]
